FAERS Safety Report 5588191-0 (Version None)
Quarter: 2008Q1

REPORT INFORMATION
  Report Type: 
  Country: None (occurrence: None)
  Receive Date: 20080109
  Receipt Date: 20080109
  Transmission Date: 20080703
  Serious: Yes (Life-Threatening, Hospitalization, Other)
  Sender: FDA-Public Use
  Company Number: None

PATIENT
  Age: 44 Year
  Sex: Male
  Weight: 127.0072 kg

DRUGS (1)
  1. CHANTIX [Suspect]
     Indication: SMOKING CESSATION THERAPY
     Dosage: IT WAS A STEP UP
     Dates: start: 20070615, end: 20070724

REACTIONS (10)
  - ABNORMAL DREAMS [None]
  - CONSTIPATION [None]
  - DRY MOUTH [None]
  - FLATULENCE [None]
  - GASTRIC DISORDER [None]
  - LUMBAR HERNIA [None]
  - NAUSEA [None]
  - NIGHT SWEATS [None]
  - NIGHTMARE [None]
  - VOMITING [None]
